FAERS Safety Report 8187081-7 (Version None)
Quarter: 2012Q1

REPORT INFORMATION
  Report Type: 
  Country: None (occurrence: None)
  Receive Date: 20120306
  Receipt Date: 20120224
  Transmission Date: 20120608
  Serious: Yes (Congenital Anomaly)
  Sender: FDA-Public Use
  Company Number: DE-SANOFI-AVENTIS-2012SA014787

PATIENT
  Sex: Female

DRUGS (4)
  1. LORAZEPAM [Suspect]
     Route: 064
  2. ESCITALOPRAM [Suspect]
     Route: 064
  3. ZOLPIDEM TARTRATE [Suspect]
     Route: 064
  4. MYCOPHENOLATE MOFETIL [Suspect]
     Indication: SYSTEMIC LUPUS ERYTHEMATOSUS
     Route: 064

REACTIONS (3)
  - FOETAL EXPOSURE DURING PREGNANCY [None]
  - TRACHEAL ATRESIA [None]
  - OESOPHAGEAL ATRESIA [None]
